FAERS Safety Report 23857898 (Version 1)
Quarter: 2024Q2

REPORT INFORMATION
  Report Type: Spontaneous
  Country: US (occurrence: US)
  Receive Date: 20240515
  Receipt Date: 20240515
  Transmission Date: 20240716
  Serious: Yes (Hospitalization)
  Sender: FDA-Public Use
  Company Number: US-PFIZER INC-202400106627

PATIENT
  Age: 31 Year
  Sex: Male
  Weight: 95.25 kg

DRUGS (1)
  1. OXBRYTA [Suspect]
     Active Substance: VOXELOTOR
     Indication: Sickle cell disease
     Dosage: 500 MG, 3 TABLETS A DAY, RIGHT AFTER BREAKFAST WITH WATER AFTER EATS
     Dates: start: 202302

REACTIONS (6)
  - Sickle cell anaemia with crisis [Not Recovered/Not Resolved]
  - Abdominal pain upper [Unknown]
  - Dyspnoea [Unknown]
  - Pain [Unknown]
  - Arthralgia [Unknown]
  - Hiccups [Unknown]
